FAERS Safety Report 6567260-2 (Version None)
Quarter: 2010Q1

REPORT INFORMATION
  Report Type: 
  Country: None (occurrence: None)
  Receive Date: 20100202
  Receipt Date: 20100118
  Transmission Date: 20100710
  Serious: Yes (Other)
  Sender: FDA-Public Use
  Company Number: US-BAYER-200937757NA

PATIENT
  Age: 36 Year
  Sex: Female
  Weight: 68 kg

DRUGS (7)
  1. ULTRAVIST 300 [Suspect]
     Indication: COMPUTERISED TOMOGRAM ABDOMEN
     Dosage: TOTAL DAILY DOSE: 100 ML  UNIT DOSE: 100 ML
     Route: 042
     Dates: start: 20091023, end: 20091023
  2. COUMADIN [Concomitant]
  3. SEROQUEL [Concomitant]
  4. ADVAIR DISKUS 100/50 [Concomitant]
  5. STEROIDS [Concomitant]
  6. TRILEPTAL [Concomitant]
  7. ANTIBIOTIC NOS [Concomitant]

REACTIONS (8)
  - CONVULSION [None]
  - DYSPHAGIA [None]
  - DYSPNOEA [None]
  - ERYTHEMA [None]
  - HYPERHIDROSIS [None]
  - PARAESTHESIA ORAL [None]
  - SWOLLEN TONGUE [None]
  - VOMITING [None]
